FAERS Safety Report 6037984-4 (Version None)
Quarter: 2009Q1

REPORT INFORMATION
  Report Type: 
  Country: None (occurrence: None)
  Receive Date: 20090113
  Receipt Date: 20090113
  Transmission Date: 20090719
  Serious: No
  Sender: FDA-Public Use
  Company Number: None

PATIENT
  Sex: Male
  Weight: 79.3795 kg

DRUGS (1)
  1. FORADIL [Suspect]
     Indication: ASTHMA
     Dosage: 12 MCG BID INHAL
     Dates: start: 20081128, end: 20081214

REACTIONS (2)
  - ASTHMA [None]
  - LUNG DISORDER [None]
